FAERS Safety Report 7216638-2 (Version None)
Quarter: 2011Q1

REPORT INFORMATION
  Report Type: 
  Country: None (occurrence: None)
  Receive Date: 20110110
  Receipt Date: 20101229
  Transmission Date: 20110831
  Serious: Yes (Hospitalization)
  Sender: FDA-Public Use
  Company Number: US-BIOGENIDEC-2010BI042834

PATIENT
  Age: 40 Year
  Sex: Male

DRUGS (8)
  1. VITAMIN B COMPLEX [Concomitant]
     Route: 048
  2. TADALAFIL [Concomitant]
     Route: 048
  3. ISONIAZID [Concomitant]
     Route: 048
  4. MODAFINIL [Concomitant]
     Route: 048
  5. CHOLECALCIFEROL [Concomitant]
     Route: 048
  6. TYSABRI [Suspect]
     Indication: MULTIPLE SCLEROSIS
     Route: 042
     Dates: start: 20080723
  7. PANTOPRAZOLE [Concomitant]
     Route: 048
  8. DIAZEPAM [Concomitant]
     Route: 048

REACTIONS (2)
  - HYPERTENSION [None]
  - CHEST PAIN [None]
